FAERS Safety Report 8921561 (Version 3)
Quarter: 2013Q3

REPORT INFORMATION
  Report Type: Spontaneous
  Country: US (occurrence: US)
  Receive Date: 20121122
  Receipt Date: 20130911
  Transmission Date: 20140515
  Serious: No
  Sender: FDA-Public Use
  Company Number: US-BIOGENIDEC-2012BI053183

PATIENT
  Age: 68 Year
  Sex: Female

DRUGS (3)
  1. TYSABRI [Suspect]
     Indication: MULTIPLE SCLEROSIS
     Route: 042
     Dates: start: 20120928, end: 20130719
  2. AMPYRA [Concomitant]
     Indication: GAIT DISTURBANCE
     Dates: start: 2010
  3. EXELON [Concomitant]
     Indication: MULTIPLE SCLEROSIS

REACTIONS (14)
  - Myalgia [Not Recovered/Not Resolved]
  - Pain in extremity [Not Recovered/Not Resolved]
  - Gallbladder disorder [Recovered/Resolved]
  - Gait disturbance [Not Recovered/Not Resolved]
  - Back pain [Not Recovered/Not Resolved]
  - Muscular weakness [Not Recovered/Not Resolved]
  - Slow speech [Not Recovered/Not Resolved]
  - Visual impairment [Not Recovered/Not Resolved]
  - Balance disorder [Not Recovered/Not Resolved]
  - Optic nerve disorder [Not Recovered/Not Resolved]
  - Drug ineffective [Not Recovered/Not Resolved]
  - Malaise [Not Recovered/Not Resolved]
  - Arthralgia [Not Recovered/Not Resolved]
  - Multiple sclerosis [Not Recovered/Not Resolved]
